FAERS Safety Report 9145893 (Version 3)
Quarter: 2014Q3

REPORT INFORMATION
  Report Type: Report from Study
  Country: BD (occurrence: BD)
  Receive Date: 20130307
  Receipt Date: 20140710
  Transmission Date: 20150326
  Serious: Yes (Death)
  Sender: FDA-Public Use
  Company Number: PHHY2013BD022091

PATIENT
  Age: 75 Year
  Sex: Male

DRUGS (3)
  1. EXELON [Suspect]
     Active Substance: RIVASTIGMINE TARTRATE
     Dosage: 3 MG, DAILY
     Route: 048
     Dates: start: 201201, end: 201205
  2. EXELON PATCH [Suspect]
     Active Substance: RIVASTIGMINE
     Indication: DEMENTIA
     Dosage: 4.6 MG, PER DAY
     Route: 062
     Dates: start: 200906, end: 201006
  3. EXELON [Suspect]
     Active Substance: RIVASTIGMINE TARTRATE
     Indication: DEMENTIA
     Dosage: UNK UKN, UNK
     Route: 048

REACTIONS (2)
  - Nervous system disorder [Recovering/Resolving]
  - CSF test abnormal [Fatal]

NARRATIVE: CASE EVENT DATE: 20121113
